FAERS Safety Report 9519684 (Version 1)
Quarter: 2013Q1

REPORT INFORMATION
  Report Type: Spontaneous
  Country: US (occurrence: None)
  Receive Date: 20130305
  Receipt Date: 20130305
  Transmission Date: 20140127
  Serious: Yes (Other)
  Sender: FDA-Public Use
  Company Number: 163-21880-12010276

PATIENT
  Age: 58 Year
  Sex: Male
  Weight: 83.92 kg

DRUGS (3)
  1. REVLIMID [Suspect]
     Indication: MYELODYSPLASTIC SYNDROME
     Dosage: 10 MG, DAILY FOR 21 DAYS, PO
     Route: 048
     Dates: start: 20111106
  2. LIPITOR (ATORVASTATIN) (UNKNOWN) [Concomitant]
  3. UROXATRAL (ALFUZOLSIN HYDROCHLORIDE) (UNKNOWN) [Concomitant]

REACTIONS (5)
  - Weight decreased [None]
  - Rash [None]
  - Night sweats [None]
  - Insomnia [None]
  - Gingival infection [None]
